FAERS Safety Report 7787730-9 (Version None)
Quarter: 2011Q3

REPORT INFORMATION
  Report Type: 
  Country: None (occurrence: None)
  Receive Date: 20110929
  Receipt Date: 20110920
  Transmission Date: 20111222
  Serious: Yes (Other)
  Sender: FDA-Public Use
  Company Number: US-ASTRAZENECA-2011SE56852

PATIENT
  Age: 75 Year
  Sex: Male

DRUGS (4)
  1. TOPROL-XL [Suspect]
     Route: 048
  2. CRESTOR [Suspect]
     Route: 048
  3. NEXIUM [Suspect]
     Route: 048
  4. RHINOCORT [Suspect]
     Dosage: ONE SPRAY PER NOSTRIL DAILY
     Route: 045

REACTIONS (5)
  - EXOSTOSIS [None]
  - MALAISE [None]
  - INCORRECT DOSE ADMINISTERED [None]
  - POOR PERIPHERAL CIRCULATION [None]
  - DRUG INEFFECTIVE [None]
